FAERS Safety Report 18722081 (Version 1)
Quarter: 2021Q1

REPORT INFORMATION
  Report Type: Other
  Country: CN (occurrence: CN)
  Receive Date: 20210111
  Receipt Date: 20210111
  Transmission Date: 20210419
  Serious: Yes (Other)
  Sender: FDA-Public Use
  Company Number: CN-ROCHE-2744114

PATIENT
  Age: 9 Year
  Sex: Female

DRUGS (30)
  1. CYCLOSPORINE. [Suspect]
     Active Substance: CYCLOSPORINE
     Route: 065
     Dates: start: 20190505, end: 20190516
  2. POTASSIUM [Concomitant]
     Active Substance: POTASSIUM
     Dosage: 4.38 MMOL/L
  3. CALCIUM [Concomitant]
     Active Substance: CALCIUM
     Dosage: 1.31 MMOL/L
  4. MAGNESIUM [Concomitant]
     Active Substance: MAGNESIUM
     Dosage: 0.79 MMOL/L
  5. NIFEDIPINE. [Concomitant]
     Active Substance: NIFEDIPINE
     Indication: HYPERTENSION
  6. CALCIUM GLUCONATE. [Concomitant]
     Active Substance: CALCIUM GLUCONATE
     Dates: start: 20190505, end: 20190519
  7. MEROPENEM. [Concomitant]
     Active Substance: MEROPENEM
     Dates: start: 20190513, end: 20190518
  8. CYTARABINE. [Suspect]
     Active Substance: CYTARABINE
     Indication: STEM CELL TRANSPLANT
     Dosage: THE DRUG WAS ADMINISTERED FOR 2 DAYS.
     Route: 065
     Dates: start: 20190308
  9. FLUCONAZOLE. [Concomitant]
     Active Substance: FLUCONAZOLE
     Indication: ANTI-INFECTIVE THERAPY
     Dates: start: 20190505, end: 20190512
  10. SODIUM NITROPRUSSIDE. [Concomitant]
     Active Substance: SODIUM NITROPRUSSIDE
     Dosage: 1 ML/HOUR
     Route: 042
  11. MIDAZOLAM. [Concomitant]
     Active Substance: MIDAZOLAM
     Indication: SEIZURE
     Route: 042
  12. MIDAZOLAM. [Concomitant]
     Active Substance: MIDAZOLAM
     Route: 042
  13. CHLORIDE [Concomitant]
     Active Substance: CHLORIDE ION
     Dosage: 102.8 MMOL/L
  14. METHYLPREDNISOLONE SODIUM SUCCINATE. [Concomitant]
     Active Substance: METHYLPREDNISOLONE SODIUM SUCCINATE
     Dates: start: 20190511, end: 20190516
  15. POTASSIUM CHLORIDE. [Concomitant]
     Active Substance: POTASSIUM CHLORIDE
     Dates: start: 20190505, end: 20190519
  16. SEMUSTINE [Suspect]
     Active Substance: SEMUSTINE
     Indication: STEM CELL TRANSPLANT
     Dosage: THE DRUG WAS ADMINISTERED FOR 1 DAY.
     Route: 065
     Dates: start: 20190308
  17. VORICONAZOLE. [Concomitant]
     Active Substance: VORICONAZOLE
     Indication: ANTI-INFECTIVE THERAPY
     Dates: start: 20190513, end: 20190518
  18. METHOTREXATE. [Suspect]
     Active Substance: METHOTREXATE
     Indication: STEM CELL TRANSPLANT
     Route: 065
     Dates: start: 20190308
  19. CYCLOPHOSPHAMIDE. [Suspect]
     Active Substance: CYCLOPHOSPHAMIDE
     Indication: STEM CELL TRANSPLANT
     Dosage: CONTINUOUS MEDICATION FOR 2 DAYS
     Route: 065
     Dates: start: 20190308
  20. PHENOBARBITAL. [Concomitant]
     Active Substance: PHENOBARBITAL
     Indication: SEIZURE
     Route: 030
  21. GLUTATHIONE REDUCED [Concomitant]
     Dates: start: 20190505, end: 20190519
  22. CYCLOSPORINE. [Suspect]
     Active Substance: CYCLOSPORINE
     Route: 065
     Dates: start: 20190317, end: 20190319
  23. BUSULFAN. [Suspect]
     Active Substance: BUSULFAN
     Indication: STEM CELL TRANSPLANT
     Dosage: THE DRUG WAS ADMINISTERED FOR 3 DAYS.
     Route: 065
     Dates: start: 20190308
  24. SODIUM [Concomitant]
     Active Substance: SODIUM
     Dosage: 141.1 MMOL/L
  25. RECOMBINANT HUMAN GRANULOCYTE COLONY?STIMULATING FACTOR INJECTION (REB [Concomitant]
     Dates: start: 20190505, end: 20190519
  26. CYCLOSPORINE. [Suspect]
     Active Substance: CYCLOSPORINE
     Indication: STEM CELL TRANSPLANT
     Route: 065
     Dates: start: 20190308
  27. ANTITHYMOCYTE IMMUNOGLOBULIN (RABBIT) [Suspect]
     Active Substance: LAPINE T-LYMPHOCYTE IMMUNE GLOBULIN
     Indication: STEM CELL TRANSPLANT
     Dosage: CONTINUOUS MEDICATION FOR 4 DAYS
     Route: 065
     Dates: start: 20190308
  28. CEFTRIAXONE SODIUM. [Concomitant]
     Active Substance: CEFTRIAXONE SODIUM
     Indication: ANTI-INFECTIVE THERAPY
     Dates: start: 20190505, end: 20190511
  29. MYCOPHENOLATE MOFETIL. [Suspect]
     Active Substance: MYCOPHENOLATE MOFETIL
     Indication: STEM CELL TRANSPLANT
     Route: 065
     Dates: start: 20190308
  30. METHYLPREDNISOLONE. [Concomitant]
     Active Substance: METHYLPREDNISOLONE
     Indication: ACUTE GRAFT VERSUS HOST DISEASE

REACTIONS (3)
  - Cystitis haemorrhagic [Unknown]
  - Off label use [Unknown]
  - Intentional product use issue [Unknown]
